FAERS Safety Report 10181373 (Version 2)
Quarter: 2014Q2

REPORT INFORMATION
  Report Type: Spontaneous
  Country: US (occurrence: US)
  Receive Date: 20140519
  Receipt Date: 20140612
  Transmission Date: 20141212
  Serious: Yes (Other)
  Sender: FDA-Public Use
  Company Number: US-AMGEN INC.-USASP2014034420

PATIENT
  Age: 74 Year
  Sex: Female
  Weight: 67.12 kg

DRUGS (5)
  1. PROLIA [Suspect]
     Indication: OSTEOPOROSIS POSTMENOPAUSAL
     Dosage: 60 MG, Q6MO
     Route: 058
     Dates: start: 20140423
  2. SINGULAIR [Concomitant]
     Indication: ASTHMA
     Dosage: 10 MG, QHS
     Route: 048
     Dates: start: 20070101
  3. ALPRAZOLAM [Concomitant]
     Indication: ANXIETY
     Dosage: 25 MG, QHS
     Route: 048
     Dates: start: 20110817
  4. SIMVASTATIN [Concomitant]
     Indication: HYPERLIPIDAEMIA
     Dosage: 20 MG, QHS
     Route: 048
     Dates: start: 20070101
  5. ADVAIR [Concomitant]
     Indication: ASTHMA
     Dosage: 250 UNK, QD
     Route: 048
     Dates: start: 20070101

REACTIONS (9)
  - Diverticulum intestinal [Unknown]
  - Abdominal pain [Recovering/Resolving]
  - Pain [Unknown]
  - Decreased appetite [Unknown]
  - Red blood cell sedimentation rate increased [Unknown]
  - Weight decreased [Unknown]
  - Constipation [Unknown]
  - Back pain [Recovered/Resolved]
  - Pain in extremity [Recovered/Resolved]
